FAERS Safety Report 15322073 (Version 1)
Quarter: 2018Q3

REPORT INFORMATION
  Report Type: Spontaneous
  Country: US (occurrence: US)
  Receive Date: 20180827
  Receipt Date: 20180827
  Transmission Date: 20181010
  Serious: No
  Sender: FDA-Public Use
  Company Number: US-SA-2018SA236730

PATIENT
  Sex: Female

DRUGS (1)
  1. KEVZARA [Suspect]
     Active Substance: SARILUMAB
     Dosage: 200/1.14ML, QOW
     Route: 058
     Dates: start: 20180424

REACTIONS (3)
  - Injection site reaction [Unknown]
  - Pruritus [Unknown]
  - Swelling [Unknown]
